FAERS Safety Report 24098425 (Version 2)
Quarter: 2025Q3

REPORT INFORMATION
  Report Type: Spontaneous
  Country: GB (occurrence: GB)
  Receive Date: 20240716
  Receipt Date: 20250908
  Transmission Date: 20251020
  Serious: Yes (Other)
  Sender: MYLAN
  Company Number: None

PATIENT
  Age: 66 Year
  Sex: Female

DRUGS (20)
  1. VENLAFAXINE [Interacting]
     Active Substance: VENLAFAXINE HYDROCHLORIDE
     Indication: Depressed mood
     Dosage: 375 MILLIGRAM, QD (375 MG XL DAILY) (EXTENDED RELEASE)
     Dates: start: 201901, end: 20230427
  2. VENLAFAXINE [Interacting]
     Active Substance: VENLAFAXINE HYDROCHLORIDE
     Dosage: 375 MILLIGRAM, QD (375 MG XL DAILY) (EXTENDED RELEASE)
     Route: 065
     Dates: start: 201901, end: 20230427
  3. VENLAFAXINE [Interacting]
     Active Substance: VENLAFAXINE HYDROCHLORIDE
     Dosage: 375 MILLIGRAM, QD (375 MG XL DAILY) (EXTENDED RELEASE)
     Route: 065
     Dates: start: 201901, end: 20230427
  4. VENLAFAXINE [Interacting]
     Active Substance: VENLAFAXINE HYDROCHLORIDE
     Dosage: 375 MILLIGRAM, QD (375 MG XL DAILY) (EXTENDED RELEASE)
     Dates: start: 201901, end: 20230427
  5. DATSCAN [Interacting]
     Active Substance: IODINE\IOFLUPANE I-123
     Indication: Parkinsonism
     Dates: start: 20190412, end: 20190412
  6. DATSCAN [Interacting]
     Active Substance: IODINE\IOFLUPANE I-123
     Route: 065
     Dates: start: 20190412, end: 20190412
  7. DATSCAN [Interacting]
     Active Substance: IODINE\IOFLUPANE I-123
     Route: 065
     Dates: start: 20190412, end: 20190412
  8. DATSCAN [Interacting]
     Active Substance: IODINE\IOFLUPANE I-123
     Dates: start: 20190412, end: 20190412
  9. FLUPENTIXOL [Interacting]
     Active Substance: FLUPENTIXOL
     Indication: Schizophrenia
  10. FLUPENTIXOL [Interacting]
     Active Substance: FLUPENTIXOL
     Route: 065
  11. FLUPENTIXOL [Interacting]
     Active Substance: FLUPENTIXOL
     Route: 065
  12. FLUPENTIXOL [Interacting]
     Active Substance: FLUPENTIXOL
  13. MIRTAZAPINE [Concomitant]
     Active Substance: MIRTAZAPINE
     Indication: Depressed mood
  14. MIRTAZAPINE [Concomitant]
     Active Substance: MIRTAZAPINE
     Route: 065
  15. MIRTAZAPINE [Concomitant]
     Active Substance: MIRTAZAPINE
     Route: 065
  16. MIRTAZAPINE [Concomitant]
     Active Substance: MIRTAZAPINE
  17. PROCYCLIDINE [Concomitant]
     Active Substance: PROCYCLIDINE
     Indication: Tremor
  18. PROCYCLIDINE [Concomitant]
     Active Substance: PROCYCLIDINE
     Route: 065
  19. PROCYCLIDINE [Concomitant]
     Active Substance: PROCYCLIDINE
     Route: 065
  20. PROCYCLIDINE [Concomitant]
     Active Substance: PROCYCLIDINE

REACTIONS (2)
  - Parkinsonism [Unknown]
  - Drug interaction [Not Recovered/Not Resolved]

NARRATIVE: CASE EVENT DATE: 20190412
